FAERS Safety Report 7855411 (Version 8)
Quarter: 2014Q1

REPORT INFORMATION
  Report Type: Spontaneous
  Country: US (occurrence: US)
  Receive Date: 20110315
  Receipt Date: 20140219
  Transmission Date: 20141002
  Serious: Yes (Other)
  Sender: FDA-Public Use
  Company Number: US-JNJFOC-20110302248

PATIENT
  Age: 60 Year
  Sex: Female
  Weight: 88 kg

DRUGS (25)
  1. REMICADE [Suspect]
     Indication: COLITIS ULCERATIVE
     Dosage: 100 MG, ??APPROXIMATELY 10 INFUSIONS RECEIVED
     Route: 042
     Dates: start: 20100405
  2. REMICADE [Suspect]
     Indication: COLITIS ULCERATIVE
     Dosage: 100 MG, ??APPROXIMATELY 10 INFUSIONS RECEIVED
     Route: 042
     Dates: start: 20100422
  3. REMICADE [Suspect]
     Indication: COLITIS ULCERATIVE
     Dosage: 100 MG, ??APPROXIMATELY 10 INFUSIONS RECEIVED
     Route: 042
     Dates: start: 20100520
  4. REMICADE [Suspect]
     Indication: COLITIS ULCERATIVE
     Dosage: 100 MG, ??APPROXIMATELY 10 INFUSIONS RECEIVED
     Route: 042
     Dates: start: 20100715
  5. REMICADE [Suspect]
     Indication: COLITIS ULCERATIVE
     Dosage: 100 MG, ??APPROXIMATELY 10 INFUSIONS RECEIVED
     Route: 042
     Dates: start: 20100923
  6. REMICADE [Suspect]
     Indication: COLITIS ULCERATIVE
     Dosage: 100 MG, ??APPROXIMATELY 10 INFUSIONS RECEIVED
     Route: 042
     Dates: start: 20101118
  7. REMICADE [Suspect]
     Indication: COLITIS ULCERATIVE
     Dosage: 100 MG, ??APPROXIMATELY 10 INFUSIONS RECEIVED
     Route: 042
     Dates: start: 20101216
  8. REMICADE [Suspect]
     Indication: COLITIS ULCERATIVE
     Route: 042
     Dates: start: 20110122, end: 20110122
  9. REMICADE [Suspect]
     Indication: CROHN^S DISEASE
     Dosage: 100 MG, ??APPROXIMATELY 10 INFUSIONS RECEIVED
     Route: 042
     Dates: start: 20100422
  10. REMICADE [Suspect]
     Indication: CROHN^S DISEASE
     Dosage: 100 MG, ??APPROXIMATELY 10 INFUSIONS RECEIVED
     Route: 042
     Dates: start: 20100405
  11. REMICADE [Suspect]
     Indication: CROHN^S DISEASE
     Dosage: 100 MG, ??APPROXIMATELY 10 INFUSIONS RECEIVED
     Route: 042
     Dates: start: 20100520
  12. REMICADE [Suspect]
     Indication: CROHN^S DISEASE
     Dosage: 100 MG, ??APPROXIMATELY 10 INFUSIONS RECEIVED
     Route: 042
     Dates: start: 20100715
  13. REMICADE [Suspect]
     Indication: CROHN^S DISEASE
     Dosage: 100 MG, ??APPROXIMATELY 10 INFUSIONS RECEIVED
     Route: 042
     Dates: start: 20100923
  14. REMICADE [Suspect]
     Indication: CROHN^S DISEASE
     Dosage: 100 MG, ??APPROXIMATELY 10 INFUSIONS RECEIVED
     Route: 042
     Dates: start: 20101118
  15. REMICADE [Suspect]
     Indication: CROHN^S DISEASE
     Dosage: 100 MG, ??APPROXIMATELY 10 INFUSIONS RECEIVED
     Route: 042
     Dates: start: 20101216
  16. REMICADE [Suspect]
     Indication: CROHN^S DISEASE
     Route: 042
     Dates: start: 20110122, end: 20110122
  17. ASACOL [Concomitant]
     Route: 048
     Dates: start: 20110125, end: 20110325
  18. ASACOL [Concomitant]
     Route: 048
     Dates: start: 20080629, end: 20110125
  19. CORTIFOAM ENEMA [Concomitant]
     Route: 054
     Dates: start: 20100310, end: 20110908
  20. PREDNISONE [Concomitant]
     Route: 048
     Dates: start: 20100128
  21. CANASA SUPPOSITORIES [Concomitant]
     Route: 054
     Dates: start: 20100128, end: 20100310
  22. SOLU MEDROL [Concomitant]
     Indication: PREMEDICATION
     Route: 042
  23. SOLU MEDROL [Concomitant]
     Indication: PREMEDICATION
     Route: 042
     Dates: start: 20100923
  24. BENADRYL [Concomitant]
     Indication: PREMEDICATION
     Route: 042
     Dates: start: 20100923
  25. BENADRYL [Concomitant]
     Indication: PREMEDICATION
     Route: 042

REACTIONS (4)
  - Malignant melanoma stage I [Recovered/Resolved]
  - Basal cell carcinoma [Unknown]
  - Infusion related reaction [Unknown]
  - Oropharyngeal pain [Unknown]
